FAERS Safety Report 14251448 (Version 6)
Quarter: 2018Q1

REPORT INFORMATION
  Report Type: Report from Study
  Country: BR (occurrence: BR)
  Receive Date: 20171205
  Receipt Date: 20180207
  Transmission Date: 20180508
  Serious: Yes (Other)
  Sender: FDA-Public Use
  Company Number: PHHY2017BR176986

PATIENT
  Sex: Female
  Weight: 70 kg

DRUGS (1)
  1. ACLASTA [Suspect]
     Active Substance: ZOLEDRONIC ACID
     Indication: OSTEOPOROSIS
     Dosage: 1 DF (5 MG/100 ML), Q12MO
     Route: 042
     Dates: start: 201710

REACTIONS (11)
  - Pain [Not Recovered/Not Resolved]
  - Hypokinesia [Unknown]
  - Back pain [Recovering/Resolving]
  - Spinal pain [Not Recovered/Not Resolved]
  - Bone pain [Unknown]
  - Musculoskeletal stiffness [Not Recovered/Not Resolved]
  - Gait inability [Unknown]
  - Joint lock [Recovering/Resolving]
  - Bone disorder [Not Recovered/Not Resolved]
  - Counterfeit product administered [Unknown]
  - Drug ineffective [Unknown]
